FAERS Safety Report 4466170-4 (Version None)
Quarter: 2004Q3

REPORT INFORMATION
  Report Type: 
  Country: None (occurrence: None)
  Receive Date: 20040928
  Receipt Date: 20040928
  Transmission Date: 20050211
  Serious: Yes (Hospitalization)
  Sender: FDA-Public Use
  Company Number: None

PATIENT
  Age: 24 Year
  Sex: Female

DRUGS (2)
  1. DAPSONE [Suspect]
     Indication: PNEUMOCYSTIS CARINII PNEUMONIA
     Dosage: 200 MG QDAY PO
     Route: 048
     Dates: end: 20040327
  2. PRIMAQUINE [Suspect]
     Indication: PNEUMOCYSTIS CARINII PNEUMONIA
     Dosage: 30 MG (BASE) QDAY PO
     Route: 048
     Dates: start: 20040327, end: 20040329

REACTIONS (2)
  - ACQUIRED METHAEMOGLOBINAEMIA [None]
  - CHRONIC OBSTRUCTIVE AIRWAYS DISEASE [None]
